FAERS Safety Report 8732851 (Version 4)
Quarter: 2012Q4

REPORT INFORMATION
  Report Type: 
  Country: GB (occurrence: GB)
  Receive Date: 20120906
  Receipt Date: 20120927
  Transmission Date: 20130627
  Serious: Yes (Life-Threatening)
  Sender: FDA-Public Use
  Company Number: GB-PFIZER INC-2012198014

PATIENT
  Age: 82 Year
  Sex: Female
  Weight: 57.15 kg

DRUGS (14)
  1. RAMIPRIL [Suspect]
     Indication: PRODUCT USED FOR UNKNOWN INDICATION
     Dosage: UNK
     Route: 065
     Dates: start: 20120521
  2. LITHIUM [Interacting]
     Indication: DEPRESSION
     Dosage: UNK
     Route: 065
  3. LOFEPRAMINE [Concomitant]
     Indication: PRODUCT USED FOR UNKNOWN INDICATION
     Dosage: UNK
     Route: 065
     Dates: start: 20061121
  4. OLANZAPINE [Concomitant]
     Indication: PRODUCT USED FOR UNKNOWN INDICATION
     Dosage: UNK
     Route: 065
     Dates: start: 20061121
  5. ZOPICLONE [Concomitant]
     Indication: PRODUCT USED FOR UNKNOWN INDICATION
     Dosage: UNK
     Route: 065
     Dates: start: 20061121
  6. AMLODIPINE [Concomitant]
     Indication: PRODUCT USED FOR UNKNOWN INDICATION
     Dosage: UNK
     Dates: start: 20120420
  7. BENDROFLUMETHIAZIDE [Concomitant]
     Indication: PRODUCT USED FOR UNKNOWN INDICATION
     Dosage: UNK
     Route: 065
     Dates: start: 20120420
  8. LEVOTHYROXINE [Concomitant]
     Indication: PRODUCT USED FOR UNKNOWN INDICATION
     Dosage: UNK
     Route: 065
     Dates: start: 20120420
  9. PRIADEL [Concomitant]
     Indication: PRODUCT USED FOR UNKNOWN INDICATION
     Dosage: UNK
     Route: 065
     Dates: start: 20120518, end: 20120519
  10. PRIADEL [Concomitant]
     Dosage: UNK
     Route: 065
     Dates: start: 20120618, end: 20120619
  11. PRIADEL [Concomitant]
     Dosage: UNK
     Route: 065
     Dates: start: 20120713, end: 20120714
  12. BUDESONIDE/FORMOTEROL [Concomitant]
     Indication: PRODUCT USED FOR UNKNOWN INDICATION
     Dosage: UNK
     Dates: start: 20120618, end: 20120624
  13. BUDESONIDE/FORMOTEROL [Concomitant]
     Dosage: UNK
     Dates: start: 20120713, end: 20120719
  14. DIAZEPAM [Concomitant]
     Indication: PRODUCT USED FOR UNKNOWN INDICATION
     Dosage: UNK
     Route: 065
     Dates: start: 20120709, end: 20120714

REACTIONS (4)
  - Drug interaction [Unknown]
  - Antipsychotic drug level increased [Recovering/Resolving]
  - Glomerular filtration rate decreased [Unknown]
  - Epidermal growth factor receptor decreased [Unknown]
